FAERS Safety Report 4605834-6 (Version None)
Quarter: 2005Q1

REPORT INFORMATION
  Report Type: 
  Country: None (occurrence: None)
  Receive Date: 20050115
  Receipt Date: 20040819
  Transmission Date: 20050727
  Serious: Yes (Hospitalization)
  Sender: FDA-Public Use
  Company Number: A03200201619

PATIENT
  Age: 68 Year
  Sex: Female
  Weight: 82.1011 kg

DRUGS (2)
  1. AMBIEN [Suspect]
     Indication: INSOMNIA
     Dosage: 5MG ONCE; ORAL
     Route: 048
     Dates: start: 20010823, end: 20010823
  2. HYDROCHLOROTHIAZIDE [Concomitant]

REACTIONS (3)
  - ANKLE FRACTURE [None]
  - CONFUSIONAL STATE [None]
  - FALL [None]
